FAERS Safety Report 7864797-0 (Version None)
Quarter: 2011Q4

REPORT INFORMATION
  Report Type: 
  Country: None (occurrence: None)
  Receive Date: 20111028
  Receipt Date: 20110519
  Transmission Date: 20120403
  Serious: No
  Sender: FDA-Public Use
  Company Number: US-GLAXOSMITHKLINE-A0814203A

PATIENT
  Age: 64 Year
  Sex: Female

DRUGS (11)
  1. VITAMIN D [Concomitant]
  2. COZAAR [Concomitant]
  3. SPIRONOLACTONE [Concomitant]
  4. ADVAIR DISKUS 100/50 [Suspect]
     Indication: PRODUCT USED FOR UNKNOWN INDICATION
     Dosage: 1PUFF PER DAY
     Route: 055
  5. PROPAFENONE HCL [Concomitant]
  6. ASPIRIN [Concomitant]
  7. COREG [Concomitant]
  8. LEFLUNOMIDE [Concomitant]
  9. VENTOLIN [Concomitant]
  10. HYDROCHLOROTHIAZIDE [Concomitant]
  11. NEXIUM [Concomitant]

REACTIONS (3)
  - ILL-DEFINED DISORDER [None]
  - TOOTH INJURY [None]
  - DENTAL CARIES [None]
